FAERS Safety Report 23762764 (Version 1)
Quarter: 2024Q2

REPORT INFORMATION
  Report Type: Spontaneous
  Country: CN (occurrence: CN)
  Receive Date: 20240419
  Receipt Date: 20240419
  Transmission Date: 20240715
  Serious: Yes (Hospitalization, Other)
  Sender: FDA-Public Use
  Company Number: CN-009507513-2404CHN007652

PATIENT
  Age: 69 Year
  Sex: Female
  Weight: 55 kg

DRUGS (1)
  1. STEGLATRO [Suspect]
     Active Substance: ERTUGLIFLOZIN PIDOLATE
     Indication: Blood glucose abnormal
     Dosage: 5 MG, QD,
     Route: 048
     Dates: start: 20190501, end: 20240322

REACTIONS (3)
  - Diabetes mellitus inadequate control [Unknown]
  - Urinary tract infection bacterial [Recovering/Resolving]
  - Urinary tract infection fungal [Recovering/Resolving]

NARRATIVE: CASE EVENT DATE: 20231101
